FAERS Safety Report 13368092 (Version 1)
Quarter: 2017Q1

REPORT INFORMATION
  Report Type: Spontaneous
  Country: US (occurrence: US)
  Receive Date: 20170324
  Receipt Date: 20170324
  Transmission Date: 20170429
  Serious: No
  Sender: FDA-Public Use
  Company Number: US-009507513-1703USA005699

PATIENT
  Sex: Female
  Weight: 61.23 kg

DRUGS (7)
  1. GEODON [Suspect]
     Active Substance: ZIPRASIDONE HYDROCHLORIDE\ZIPRASIDONE MESYLATE
     Dosage: 40 MG IN THE MORNING AND 60 MG AT NIGHT
     Dates: start: 2016, end: 2016
  2. GEODON [Suspect]
     Active Substance: ZIPRASIDONE HYDROCHLORIDE\ZIPRASIDONE MESYLATE
     Dosage: 60 MG TWICE A DAY
     Dates: start: 2016
  3. GEODON [Suspect]
     Active Substance: ZIPRASIDONE HYDROCHLORIDE\ZIPRASIDONE MESYLATE
     Indication: PSYCHOTIC DISORDER
     Dosage: 60 MG IN THE MORNING AND 60 MG AT NIGHT
     Dates: start: 2001, end: 2016
  4. SEROQUEL [Suspect]
     Active Substance: QUETIAPINE FUMARATE
     Dosage: 100 MG, TAKES IT ONCE AT NIGHT
     Route: 048
  5. SINEMET [Suspect]
     Active Substance: CARBIDOPA\LEVODOPA
     Indication: PARKINSON^S DISEASE
     Dosage: 1/2 HALF OF 25-100 MG PILL IN THE MORNING AND 1/2 HALF OF 25-100 MG PILL IN THE EVENING
     Route: 048
     Dates: start: 2016
  6. SEROQUEL [Suspect]
     Active Substance: QUETIAPINE FUMARATE
     Indication: PSYCHOTIC DISORDER
     Dosage: 300 MG, UNK
     Route: 048
     Dates: start: 201612
  7. RITALIN [Suspect]
     Active Substance: METHYLPHENIDATE HYDROCHLORIDE
     Indication: ATTENTION DEFICIT/HYPERACTIVITY DISORDER
     Dosage: 20MG, 1 IN THE MORNING AT OTHER TIMES, TAKES IT 2 TIMES A DAY OR 3 TIMES A DAY
     Dates: start: 2009

REACTIONS (3)
  - Fall [Recovered/Resolved]
  - Extrapyramidal disorder [Recovered/Resolved]
  - Hallucination [Unknown]

NARRATIVE: CASE EVENT DATE: 2016
